FAERS Safety Report 5688136-9 (Version None)
Quarter: 2008Q1

REPORT INFORMATION
  Report Type: 
  Country: None (occurrence: None)
  Receive Date: 20080327
  Receipt Date: 20080314
  Transmission Date: 20080703
  Serious: Yes (Congenital Anomaly, Other)
  Sender: FDA-Public Use
  Company Number: 2007S1000215

PATIENT
  Age: 41 Year
  Sex: Female

DRUGS (3)
  1. SORIATANE [Suspect]
     Indication: ICHTHYOSIS
     Dosage: 35 MG; QD; PO; PO
     Route: 048
     Dates: start: 20070525, end: 20070601
  2. SORIATANE [Suspect]
     Indication: ICHTHYOSIS
     Dosage: 35 MG; QD; PO; PO
     Route: 048
  3. CONTRACEPTIVE NOS [Concomitant]

REACTIONS (3)
  - CONGENITAL CEREBRAL CYST [None]
  - DRUG EXPOSURE DURING PREGNANCY [None]
  - UMBILICAL CORD VASCULAR DISORDER [None]
